FAERS Safety Report 7916858-5 (Version None)
Quarter: 2011Q4

REPORT INFORMATION
  Report Type: 
  Country: None (occurrence: None)
  Receive Date: 20111116
  Receipt Date: 20111109
  Transmission Date: 20120403
  Serious: Yes (Hospitalization, Other)
  Sender: FDA-Public Use
  Company Number: BR-BRISTOL-MYERS SQUIBB COMPANY-16227829

PATIENT
  Age: 82 Year
  Sex: Female
  Weight: 59 kg

DRUGS (3)
  1. IRBESARTAN [Suspect]
     Indication: HYPERTENSION
     Dosage: 1DF=1 TABLET
     Route: 048
     Dates: start: 20071001
  2. METOPROLOL SUCCINATE [Concomitant]
     Indication: HYPERTENSION
     Dosage: 1DF=1 TABLET
     Route: 048
     Dates: start: 20071001
  3. CLONAZEPAM [Concomitant]
     Dosage: 1DF=1 TABLET
     Route: 048
     Dates: start: 20110101

REACTIONS (1)
  - DIVERTICULITIS [None]
